FAERS Safety Report 21271183 (Version 1)
Quarter: 2022Q3

REPORT INFORMATION
  Report Type: Spontaneous
  Country: US (occurrence: US)
  Receive Date: 20220830
  Receipt Date: 20220830
  Transmission Date: 20221026
  Serious: Yes (Other)
  Sender: FDA-Public Use
  Company Number: US-BRISTOL-MYERS SQUIBB COMPANY-2022-095307

PATIENT
  Age: 61 Year
  Sex: Female

DRUGS (5)
  1. REVLIMID [Suspect]
     Active Substance: LENALIDOMIDE
     Indication: Plasma cell myeloma
     Dosage: DAYS 1-21 OF EACH 28 DAY CYCLE
     Route: 048
     Dates: start: 20220128
  2. HYDROMORPHONE [Concomitant]
     Active Substance: HYDROMORPHONE
  3. TRAZODONE [Concomitant]
     Active Substance: TRAZODONE HYDROCHLORIDE
  4. VELCADE [Concomitant]
     Active Substance: BORTEZOMIB
  5. METHADONE [Concomitant]
     Active Substance: METHADONE HYDROCHLORIDE
     Dosage: 10MG/5ML

REACTIONS (1)
  - Neuropathy peripheral [Unknown]
